FAERS Safety Report 16608818 (Version 1)
Quarter: 2019Q3

REPORT INFORMATION
  Report Type: Report from Study
  Country: AT (occurrence: AT)
  Receive Date: 20190722
  Receipt Date: 20190722
  Transmission Date: 20191004
  Serious: Yes (Life-Threatening, Other)
  Sender: FDA-Public Use
  Company Number: AT-RECRO GAINESVILLE LLC-REPH-2019-000133

PATIENT
  Age: 41 Year
  Sex: Male
  Weight: 60 kg

DRUGS (6)
  1. VERAPAMIL HYDROCHLORIDE SUSTAINED RELEASE [Suspect]
     Active Substance: VERAPAMIL HYDROCHLORIDE
     Dosage: 4800-6400 MILLIGRAM, ONE TIME DOSE
     Route: 048
  2. CYANOCOBALAMIN. [Suspect]
     Active Substance: CYANOCOBALAMIN
     Dosage: 5 MILLIGRAM, ONE TIME DOSE
     Route: 048
  3. TIMOLOL. [Suspect]
     Active Substance: TIMOLOL
     Dosage: 6.25 MILLIGRAM, ONE TIME DOSE
     Route: 048
  4. PYRIDOXINE HYDROCHLORIDE. [Suspect]
     Active Substance: PYRIDOXINE HYDROCHLORIDE
     Dosage: UNK, ONE TIME DOSE
     Route: 048
  5. THIAMINE NITRATE [Suspect]
     Active Substance: THIAMINE MONONITRATE
     Dosage: 1 GRAM, ONE TIME DOSE
     Route: 048
  6. DICLOFENAC [Suspect]
     Active Substance: DICLOFENAC
     Dosage: 1 GRAM, ONE TIME DOSE
     Route: 048

REACTIONS (10)
  - Suicide attempt [Recovered/Resolved]
  - Pupillary reflex impaired [Recovered/Resolved]
  - Pulseless electrical activity [Recovered/Resolved]
  - Pulse abnormal [Recovered/Resolved]
  - Sinus bradycardia [Recovered/Resolved]
  - Atrioventricular block second degree [Recovered/Resolved]
  - Incoherent [Recovered/Resolved]
  - Blood pressure immeasurable [Recovered/Resolved]
  - Atrioventricular block first degree [Recovered/Resolved]
  - Hypothermia [Recovered/Resolved]
